FAERS Safety Report 25103362 (Version 1)
Quarter: 2025Q1

REPORT INFORMATION
  Report Type: Spontaneous
  Country: US (occurrence: US)
  Receive Date: 20250321
  Receipt Date: 20250321
  Transmission Date: 20250409
  Serious: Yes (Other)
  Sender: SANOFI AVENTIS
  Company Number: US-DialogSolutions-SAAVPROD-PI748474-C1

PATIENT
  Age: 51 Year
  Sex: Male

DRUGS (1)
  1. DUPILUMAB [Suspect]
     Active Substance: DUPILUMAB
     Indication: Rhinitis allergic

REACTIONS (8)
  - Restrictive cardiomyopathy [Recovering/Resolving]
  - Chest pain [Recovering/Resolving]
  - Pleuritic pain [Recovering/Resolving]
  - Palpitations [Recovering/Resolving]
  - Respiratory tract congestion [Recovering/Resolving]
  - Exercise tolerance decreased [Recovering/Resolving]
  - Eosinophilia [Unknown]
  - Off label use [Unknown]
